FAERS Safety Report 9905041 (Version 1)
Quarter: 2013Q2

REPORT INFORMATION
  Report Type: Spontaneous
  Country: US (occurrence: None)
  Receive Date: 20130305
  Receipt Date: 20130305
  Transmission Date: 20140414
  Serious: Yes (Hospitalization)
  Sender: FDA-Public Use
  Company Number: 163-21880-12041900

PATIENT
  Age: 60 Year
  Sex: Female
  Weight: 84.82 kg

DRUGS (5)
  1. REVLIMID (LENALIDOMIDE) (25 MILLIGRAM, CAPSULES) [Suspect]
     Dosage: 25 MG, DAILY X 21, PO
     Route: 048
     Dates: start: 20111005, end: 20111115
  2. AZOR (ALPRAZOLAM) [Concomitant]
  3. MORPHINE (MORPHINE) [Concomitant]
  4. PROMETHAZINE (PROMETHAZINE) [Concomitant]
  5. DEXAMETHASONE (DEXAMETHASONE) [Concomitant]

REACTIONS (2)
  - Thrombosis [None]
  - Pulmonary thrombosis [None]
